FAERS Safety Report 8612258-3 (Version None)
Quarter: 2012Q3

REPORT INFORMATION
  Report Type: 
  Country: None (occurrence: None)
  Receive Date: 20120822
  Receipt Date: 20120814
  Transmission Date: 20120928
  Serious: Yes (Hospitalization)
  Sender: FDA-Public Use
  Company Number: US-ACTELION-A-US2012-66055

PATIENT
  Age: 5 Year
  Sex: Female

DRUGS (3)
  1. REMODULIN [Suspect]
  2. SILDENAFIL [Concomitant]
  3. TRACLEER [Suspect]
     Indication: PULMONARY ARTERIAL HYPERTENSION
     Dosage: UNK
     Route: 048
     Dates: start: 20110630

REACTIONS (3)
  - PYREXIA [None]
  - VOMITING [None]
  - PULMONARY ARTERIAL HYPERTENSION [None]
